FAERS Safety Report 16437372 (Version 3)
Quarter: 2020Q3

REPORT INFORMATION
  Report Type: Report from Study
  Country: CZ (occurrence: CZ)
  Receive Date: 20190615
  Receipt Date: 20190802
  Transmission Date: 20201105
  Serious: Yes (Hospitalization)
  Sender: FDA-Public Use
  Company Number: CZ-ROCHE-2226358

PATIENT
  Age: 53 Year
  Sex: Female
  Weight: 56 kg

DRUGS (61)
  1. MILURIT [Concomitant]
     Active Substance: ALLOPURINOL
     Route: 048
     Dates: start: 20181128, end: 20181129
  2. NOLPAZA [Concomitant]
     Active Substance: PANTOPRAZOLE SODIUM
     Indication: GASTROOESOPHAGEAL REFLUX DISEASE
     Route: 048
     Dates: start: 20181121, end: 20181209
  3. CYTOSAR [Concomitant]
     Active Substance: CYTARABINE
     Indication: PROPHYLAXIS
     Route: 037
     Dates: start: 20181203, end: 20181203
  4. CYTOSAR [Concomitant]
     Active Substance: CYTARABINE
     Route: 037
     Dates: start: 20181220, end: 20181220
  5. METHOTREXATE. [Concomitant]
     Active Substance: METHOTREXATE
     Route: 037
     Dates: start: 20181220, end: 20181220
  6. KYTRIL [Concomitant]
     Active Substance: GRANISETRON HYDROCHLORIDE
     Route: 050
     Dates: start: 20181128, end: 20181130
  7. ZYRTEC [Concomitant]
     Active Substance: CETIRIZINE HYDROCHLORIDE
     Dosage: PREMEDICATION OF RITUXIMAB
     Route: 048
     Dates: start: 20190103, end: 20190103
  8. FENTALIS [Concomitant]
     Active Substance: FENTANYL
     Indication: PAIN
     Dosage: 12.5 OTHER
     Route: 062
     Dates: start: 20181223, end: 20190108
  9. POLATUZUMAB VEDOTIN. [Suspect]
     Active Substance: POLATUZUMAB VEDOTIN
     Indication: DIFFUSE LARGE B-CELL LYMPHOMA
     Dosage: DATE OF MOST RECENT DOSE OF POLATUZUMAB VEDOTIN PRIOR TO FIRST OCCURRENCE OF VOMITING ONSET 28/NOV/2
     Route: 042
  10. NOLPAZA [Concomitant]
     Active Substance: PANTOPRAZOLE SODIUM
     Route: 048
     Dates: start: 20181210, end: 20181224
  11. VIGANTOL [COLECALCIFEROL] [Concomitant]
     Active Substance: CHOLECALCIFEROL
     Indication: VITAMIN D DEFICIENCY
     Route: 048
     Dates: start: 20181129
  12. ESPUMISAN [SIMETICONE] [Concomitant]
     Route: 048
     Dates: start: 20181202, end: 20181202
  13. ZARZIO [Concomitant]
     Active Substance: FILGRASTIM
     Dosage: PREVENTION OF NEUTROPENIA
     Route: 058
     Dates: start: 20181226, end: 20181229
  14. DICLOFENAC [Concomitant]
     Active Substance: DICLOFENAC
     Indication: PAIN
     Route: 042
     Dates: start: 20181127, end: 20181127
  15. ZYRTEC [Concomitant]
     Active Substance: CETIRIZINE HYDROCHLORIDE
     Dosage: PREMEDICATION OF RITUXIMAB
     Route: 048
     Dates: start: 20181219, end: 20181219
  16. KALNORMIN [Concomitant]
     Active Substance: POTASSIUM CHLORIDE
     Dosage: PREVENTION OF HYPOKALEMIA
     Route: 048
     Dates: start: 20181213, end: 20181215
  17. KALNORMIN [Concomitant]
     Active Substance: POTASSIUM CHLORIDE
     Dosage: PREVENTION OF HYPOKALEMIA
     Route: 048
     Dates: start: 20181216, end: 20181230
  18. CYCLOPHOSPHAMIDE. [Suspect]
     Active Substance: CYCLOPHOSPHAMIDE
     Indication: DIFFUSE LARGE B-CELL LYMPHOMA
     Dosage: DATE OF MOST RECENT DOSE OF CYCLOPHOSPHAMIDE PRIOR TO FIRST OCCURRENCE OF VOMITING ONSET ON 28/NOV/2
     Route: 042
     Dates: start: 20181128
  19. DEGAN [Concomitant]
     Active Substance: METOCLOPRAMIDE HYDROCHLORIDE
     Route: 042
     Dates: start: 20181210, end: 20181210
  20. ZALDIAR [Concomitant]
     Active Substance: ACETAMINOPHEN\TRAMADOL HYDROCHLORIDE
     Indication: PAIN
     Route: 048
     Dates: start: 20181125, end: 20181125
  21. DIPIDOLOR [Concomitant]
     Active Substance: PIRITRAMIDE
     Indication: PAIN
     Route: 060
     Dates: start: 20181128, end: 20181128
  22. DORMICUM [MIDAZOLAM] [Concomitant]
     Active Substance: MIDAZOLAM HYDROCHLORIDE
     Indication: INSOMNIA
     Route: 048
     Dates: start: 20181122, end: 20181122
  23. ZYRTEC [Concomitant]
     Active Substance: CETIRIZINE HYDROCHLORIDE
     Indication: PREMEDICATION
     Dosage: PREMEDICATION OF RITUXIMAB
     Route: 048
     Dates: start: 20181128, end: 20181128
  24. PARALEN [PARACETAMOL] [Concomitant]
     Dosage: PREMEDICATION OF RITUXIMAB
     Route: 048
     Dates: start: 20190103, end: 20190103
  25. NEUROL [ALPRAZOLAM] [Concomitant]
     Dosage: PREVENTION OF ANXIETY
     Route: 048
     Dates: start: 20181128, end: 20181202
  26. NEUROL [ALPRAZOLAM] [Concomitant]
     Dosage: PREVENTION OF ANXIETY
     Route: 048
     Dates: start: 20181204, end: 20190403
  27. LACTULOSE. [Concomitant]
     Active Substance: LACTULOSE
     Indication: CONSTIPATION
     Route: 048
     Dates: start: 20181129, end: 20190108
  28. ZALDIAR [Concomitant]
     Active Substance: ACETAMINOPHEN\TRAMADOL HYDROCHLORIDE
     Route: 048
     Dates: start: 20181126, end: 20181126
  29. PARALEN [PARACETAMOL] [Concomitant]
     Indication: PREMEDICATION
     Dosage: PREMEDICATION OF RITUXIMAB
     Route: 048
     Dates: start: 20181128, end: 20181128
  30. KALNORMIN [Concomitant]
     Active Substance: POTASSIUM CHLORIDE
     Dosage: PREVENTION OF HYPOKALEMIA
     Route: 048
     Dates: start: 20181210, end: 20181212
  31. DEXAMED [DEXAMETHASONE SODIUM PHOSPHATE] [Concomitant]
     Route: 037
     Dates: start: 20181203, end: 20181203
  32. PLACEBO [Suspect]
     Active Substance: UNSPECIFIED INGREDIENT
     Indication: DIFFUSE LARGE B-CELL LYMPHOMA
     Dosage: DATE OF MOST RECENT DOSE OF PLACEBO PRIOR TO FIRST OCCURRENCE OF VOMITING ONSET ON 28/NOV/2018?DATE
     Route: 042
  33. RITUXIMAB. [Suspect]
     Active Substance: RITUXIMAB
     Indication: DIFFUSE LARGE B-CELL LYMPHOMA
     Dosage: DATE OF MOST RECENT DOSE OF RITUXIMAB PRIOR TO FIRST OCCURRENCE OF VOMITING ONSET  28/NOV/2018?DATE
     Route: 041
     Dates: start: 20181128
  34. DOXORUBICIN [Suspect]
     Active Substance: DOXORUBICIN
     Indication: DIFFUSE LARGE B-CELL LYMPHOMA
     Dosage: DATE OF MOST RECENT DOSE OF DOXORUBICIN PRIOR TO FIRST OCCURRENCE OF VOMITING ONSET 28/NOV/2018 (85.
     Route: 042
     Dates: start: 20181128
  35. MILURIT [Concomitant]
     Active Substance: ALLOPURINOL
     Route: 048
     Dates: start: 20181122, end: 20181127
  36. ZARZIO [Concomitant]
     Active Substance: FILGRASTIM
     Route: 058
     Dates: start: 20181207, end: 20181208
  37. ZARZIO [Concomitant]
     Active Substance: FILGRASTIM
     Dosage: PREVENTION OF NEUTROPENIA
     Route: 058
     Dates: start: 20181210, end: 20181211
  38. HELICID [OMEPRAZOLE] [Concomitant]
     Route: 048
     Dates: start: 20190102, end: 20190424
  39. MONOSODIUM PHOSPHATE [Concomitant]
     Route: 042
     Dates: start: 20181125, end: 20181126
  40. AKYNZEO [Concomitant]
     Active Substance: NETUPITANT\PALONOSETRON HYDROCHLORIDE
     Indication: PREMEDICATION
     Dosage: PREMEDICATION OF RITUXIMAB
     Route: 048
     Dates: start: 20181219, end: 20181219
  41. AKYNZEO [Concomitant]
     Active Substance: NETUPITANT\PALONOSETRON HYDROCHLORIDE
     Dosage: PREMEDICATION OF RITUXIMAB
     Route: 048
     Dates: start: 20190103, end: 20190103
  42. BISACODYLUM [Concomitant]
     Indication: CONSTIPATION
     Route: 048
     Dates: start: 20181226, end: 20181226
  43. DEGAN [Concomitant]
     Active Substance: METOCLOPRAMIDE HYDROCHLORIDE
     Indication: NAUSEA
     Dosage: PROPHYLAXIS OF NAUSEA
     Route: 042
     Dates: start: 20181122, end: 20181201
  44. DEGAN [Concomitant]
     Active Substance: METOCLOPRAMIDE HYDROCHLORIDE
     Route: 042
     Dates: start: 20181206, end: 201902
  45. TRANSTEC [Concomitant]
     Active Substance: BUPRENORPHINE
     Indication: PAIN
     Route: 062
     Dates: start: 20181128, end: 20181222
  46. ALGIFEN [FENPIVERINIUM BROMIDE;METAMIZOLE SODIUM;PITOFENONE HYDROCHLOR [Concomitant]
     Indication: PAIN
     Route: 048
     Dates: start: 201810, end: 20181121
  47. PARALEN [PARACETAMOL] [Concomitant]
     Route: 048
     Dates: start: 20181219, end: 20181219
  48. HYDROCORTISONE. [Concomitant]
     Active Substance: HYDROCORTISONE
     Route: 037
     Dates: start: 20181220, end: 20181220
  49. DEXAMED [DEXAMETHASONE SODIUM PHOSPHATE] [Concomitant]
     Indication: NAUSEA
     Route: 042
     Dates: start: 20181210, end: 20181210
  50. PREDNISONE. [Suspect]
     Active Substance: PREDNISONE
     Indication: DIFFUSE LARGE B-CELL LYMPHOMA
     Dosage: DATE OF MOST RECENT DOSE OF PREDNISONE PRIOR TO FIRST OCCURRENCE OF VOMITING ONSET ON 02/DEC/2018?DA
     Route: 042
     Dates: start: 20181128
  51. MIFLONID [Concomitant]
     Active Substance: BUDESONIDE
     Indication: ASTHMA
     Route: 050
     Dates: start: 2017
  52. MILURIT [Concomitant]
     Active Substance: ALLOPURINOL
     Route: 048
     Dates: start: 20181128, end: 201812
  53. NOLPAZA [Concomitant]
     Active Substance: PANTOPRAZOLE SODIUM
     Route: 048
     Dates: start: 20181228
  54. METHOTREXATE. [Concomitant]
     Active Substance: METHOTREXATE
     Indication: PROPHYLAXIS
     Route: 037
     Dates: start: 20181203, end: 20181203
  55. KINITO [Concomitant]
     Route: 048
     Dates: start: 20181116, end: 20181122
  56. ZALDIAR [Concomitant]
     Active Substance: ACETAMINOPHEN\TRAMADOL HYDROCHLORIDE
     Route: 048
     Dates: start: 20181128, end: 20181128
  57. FRAXIPARINE [Concomitant]
     Active Substance: NADROPARIN CALCIUM
     Route: 058
     Dates: start: 20181116, end: 20190430
  58. MILURIT [Concomitant]
     Active Substance: ALLOPURINOL
     Indication: PROPHYLAXIS
     Route: 048
     Dates: start: 20181130, end: 20181205
  59. NOLPAZA [Concomitant]
     Active Substance: PANTOPRAZOLE SODIUM
     Route: 048
     Dates: start: 20181227, end: 20181227
  60. HELICID [OMEPRAZOLE] [Concomitant]
     Indication: GASTROOESOPHAGEAL REFLUX DISEASE
     Route: 048
     Dates: start: 20181116, end: 20181120
  61. NOVALGIN (METAMIZOLE SODIUM) [Concomitant]
     Active Substance: METAMIZOLE SODIUM
     Indication: PAIN
     Route: 042
     Dates: start: 20181121, end: 20181128

REACTIONS (2)
  - Vomiting [Recovered/Resolved]
  - Vomiting [Recovered/Resolved]

NARRATIVE: CASE EVENT DATE: 20181204
